FAERS Safety Report 4633959-8 (Version None)
Quarter: 2005Q2

REPORT INFORMATION
  Report Type: 
  Country: None (occurrence: None)
  Receive Date: 20050412
  Receipt Date: 20050412
  Transmission Date: 20051028
  Serious: No
  Sender: FDA-Public Use
  Company Number: None

PATIENT
  Age: 47 Year
  Sex: Male

DRUGS (1)
  1. FENTANYL TRANSDERM PATCH 100 MCG ALZA( SANDOZ) [Suspect]

REACTIONS (3)
  - ASTHENIA [None]
  - PHARMACEUTICAL PRODUCT COMPLAINT [None]
  - RETCHING [None]
